FAERS Safety Report 5842727-0 (Version None)
Quarter: 2008Q3

REPORT INFORMATION
  Report Type: 
  Country: None (occurrence: None)
  Receive Date: 20080808
  Receipt Date: 20080730
  Transmission Date: 20090109
  Serious: Yes (Hospitalization)
  Sender: FDA-Public Use
  Company Number: 230033K07USA

PATIENT
  Age: 53 Year
  Sex: Female
  Weight: 77.1115 kg

DRUGS (4)
  1. REBIF [Suspect]
     Indication: MULTIPLE SCLEROSIS
     Dosage: 44 MCG, 3 IN 1 WEEKS, SUBCUTANEOUS
     Route: 058
     Dates: start: 20040617
  2. SYNTHROID [Concomitant]
  3. FLEXERIL [Concomitant]
  4. CELEBREX [Concomitant]

REACTIONS (4)
  - CONDITION AGGRAVATED [None]
  - MUSCULOSKELETAL PAIN [None]
  - NECK PAIN [None]
  - SPINAL DISORDER [None]
